FAERS Safety Report 6534635-7 (Version None)
Quarter: 2010Q1

REPORT INFORMATION
  Report Type: 
  Country: None (occurrence: None)
  Receive Date: 20100112
  Receipt Date: 20100104
  Transmission Date: 20100710
  Serious: Yes (Hospitalization)
  Sender: FDA-Public Use
  Company Number: US-CELGENEUS-163-C5013-07060764

PATIENT
  Sex: Female
  Weight: 90.1 kg

DRUGS (32)
  1. CC-5013 [Suspect]
     Indication: COMPLEX REGIONAL PAIN SYNDROME
     Route: 048
     Dates: start: 20051219, end: 20070726
  2. PLACEBO FOR CC-5013 [Suspect]
     Indication: COMPLEX REGIONAL PAIN SYNDROME
     Route: 048
  3. ORPHENADRINE CR [Concomitant]
     Indication: COMPLEX REGIONAL PAIN SYNDROME
     Route: 048
     Dates: start: 20040101, end: 20070301
  4. OXYCODONE HCL EXTENDED-RELEASE [Concomitant]
     Indication: COMPLEX REGIONAL PAIN SYNDROME
     Route: 048
     Dates: start: 20010101, end: 20070803
  5. OXYCODONE HCL AND ACETAMINOPHEN [Concomitant]
     Indication: COMPLEX REGIONAL PAIN SYNDROME
     Dosage: 325/5
     Route: 048
     Dates: start: 20010101, end: 20070601
  6. TRAMADOL HCL [Concomitant]
     Indication: COMPLEX REGIONAL PAIN SYNDROME
     Route: 048
     Dates: start: 19970101
  7. NEOMYCIN POLYMYXIN B SULFATE/HYDROCORTISONE [Concomitant]
     Indication: EAR PAIN
     Dosage: 1 DROP BOTH EARS BILATERAL
     Route: 001
     Dates: start: 20070212
  8. NEOMYCIN POLYMYXIN B SULFATE/HYDROCORTISONE [Concomitant]
     Indication: COMPLEX REGIONAL PAIN SYNDROME
  9. BACLOFEN [Concomitant]
     Indication: COMPLEX REGIONAL PAIN SYNDROME
     Route: 065
     Dates: start: 20000101
  10. BACLOFEN [Concomitant]
     Route: 048
  11. TOPROL-XL [Concomitant]
     Indication: HYPERTENSION
     Route: 048
     Dates: start: 20050301
  12. COMPAZINE [Concomitant]
     Indication: NAUSEA
     Route: 048
     Dates: start: 20000101
  13. PHENERGAN HCL [Concomitant]
     Indication: NAUSEA
     Dosage: 1/2 TAB
     Route: 048
     Dates: start: 19980101
  14. COLACE [Concomitant]
     Indication: CONSTIPATION
     Route: 065
     Dates: start: 20030101
  15. EFFEXOR XR [Concomitant]
     Indication: DEPRESSION
     Route: 048
     Dates: start: 20060222
  16. OMEPRAZOLE MAGNESIUM [Concomitant]
     Indication: PEPTIC ULCER
     Route: 065
     Dates: start: 20070613
  17. HYZAAR [Concomitant]
     Indication: HYPERTENSION
     Dosage: 25/100
     Route: 048
     Dates: start: 20070619
  18. HYZAAR [Concomitant]
     Dosage: 50/25
     Route: 065
     Dates: start: 20060819, end: 20070612
  19. ZANTAC [Concomitant]
     Indication: PEPTIC ULCER
     Route: 048
     Dates: end: 20070612
  20. DETROL [Concomitant]
     Indication: URINARY INCONTINENCE
     Route: 065
     Dates: start: 20060209, end: 20060101
  21. DETROL [Concomitant]
  22. SULFACETAMIDE SODIUM [Concomitant]
     Indication: EYE INFECTION STAPHYLOCOCCAL
     Route: 065
     Dates: start: 20060209, end: 20060217
  23. HYDROXYZINE [Concomitant]
     Indication: DRUG USE FOR UNKNOWN INDICATION
     Route: 048
  24. PREDNISONE [Concomitant]
     Indication: PNEUMONIA
     Route: 065
     Dates: start: 20070601, end: 20070726
  25. HYDROCHLOROTHIAZIDE [Concomitant]
     Indication: HYPERTENSION
     Route: 065
     Dates: start: 20070613, end: 20070618
  26. LOSARTAN POTASSIUM [Concomitant]
     Indication: HYPERTENSION
     Route: 065
     Dates: start: 20070613, end: 20070618
  27. TUBERSOL [Concomitant]
     Indication: TUBERCULIN TEST
     Route: 065
     Dates: start: 20070612, end: 20070612
  28. STEROIDS [Concomitant]
     Indication: DRUG USE FOR UNKNOWN INDICATION
     Route: 065
  29. GABAPENTIN [Concomitant]
     Indication: DRUG USE FOR UNKNOWN INDICATION
     Route: 048
  30. VITAMINS [Concomitant]
     Indication: DRUG USE FOR UNKNOWN INDICATION
     Route: 050
  31. TORADOL [Concomitant]
     Indication: DRUG USE FOR UNKNOWN INDICATION
     Route: 065
  32. PROCHLORPERAZINE [Concomitant]
     Indication: DRUG USE FOR UNKNOWN INDICATION
     Route: 048

REACTIONS (10)
  - ALVEOLITIS ALLERGIC [None]
  - CONSTIPATION [None]
  - DECREASED APPETITE [None]
  - DYSPHAGIA [None]
  - HYPERHIDROSIS [None]
  - HYPOPHAGIA [None]
  - PAIN [None]
  - PULMONARY HAEMORRHAGE [None]
  - SARCOIDOSIS [None]
  - WEIGHT DECREASED [None]
